FAERS Safety Report 10705635 (Version 4)
Quarter: 2015Q3

REPORT INFORMATION
  Report Type: Spontaneous
  Country: US (occurrence: US)
  Receive Date: 20150112
  Receipt Date: 20150716
  Transmission Date: 20151125
  Serious: No
  Sender: FDA-Public Use
  Company Number: US-GLAXOSMITHKLINE-A1080485A

PATIENT

DRUGS (2)
  1. PROMACTA [Suspect]
     Active Substance: ELTROMBOPAG OLAMINE
     Indication: IMMUNE THROMBOCYTOPENIC PURPURA
     Dosage: 25 MG, UNK
     Dates: start: 20100126
  2. PROMACTA [Suspect]
     Active Substance: ELTROMBOPAG OLAMINE
     Indication: NEOPLASM MALIGNANT
     Route: 065
     Dates: start: 20100201

REACTIONS (5)
  - Pain [Not Recovered/Not Resolved]
  - Therapeutic response increased [Unknown]
  - Herpes zoster [Recovering/Resolving]
  - Skin lesion [Recovering/Resolving]
  - Nonspecific reaction [Unknown]

NARRATIVE: CASE EVENT DATE: 20150627
